FAERS Safety Report 14100629 (Version 1)
Quarter: 2017Q4

REPORT INFORMATION
  Report Type: Spontaneous
  Country: PT (occurrence: PT)
  Receive Date: 20171017
  Receipt Date: 20171017
  Transmission Date: 20180321
  Serious: Yes (Death)
  Sender: FDA-Public Use
  Company Number: PHHY2017PT152542

PATIENT
  Age: 69 Year
  Sex: Female

DRUGS (1)
  1. FLUORESCEIN SODIUM. [Suspect]
     Active Substance: FLUORESCEIN SODIUM
     Indication: ANGIOGRAM
     Dosage: 4 ML, ONCE/SINGLE
     Route: 042
     Dates: start: 20170922, end: 20170922

REACTIONS (4)
  - Respiratory arrest [Fatal]
  - Anaphylactic shock [Fatal]
  - Cardio-respiratory arrest [Fatal]
  - Malaise [Fatal]

NARRATIVE: CASE EVENT DATE: 20170922
